FAERS Safety Report 8225329-0 (Version None)
Quarter: 2012Q1

REPORT INFORMATION
  Report Type: 
  Country: None (occurrence: None)
  Receive Date: 20120321
  Receipt Date: 20120312
  Transmission Date: 20120608
  Serious: Yes (Hospitalization)
  Sender: FDA-Public Use
  Company Number: JP-GLAXOSMITHKLINE-B0642112A

PATIENT
  Sex: Female

DRUGS (4)
  1. PENTAZOCINE LACTATE [Concomitant]
     Indication: ANALGESIC THERAPY
     Dosage: 52MG PER DAY
     Dates: start: 20100317
  2. ATARAX [Concomitant]
     Indication: ANALGESIC THERAPY
     Dosage: 100MG PER DAY
     Dates: start: 20100317
  3. ALBUMIN (HUMAN) [Concomitant]
     Indication: PULMONARY OEDEMA
     Dosage: 50ML PER DAY
     Route: 042
     Dates: start: 20100317
  4. ARIXTRA [Suspect]
     Indication: THROMBOSIS PROPHYLAXIS
     Dosage: 2.5MG PER DAY
     Route: 058
     Dates: start: 20100317, end: 20100317

REACTIONS (3)
  - HAEMORRHAGIC ASCITES [None]
  - INTRA-ABDOMINAL HAEMORRHAGE [None]
  - HAEMOGLOBIN DECREASED [None]
